FAERS Safety Report 4652754-7 (Version None)
Quarter: 2005Q2

REPORT INFORMATION
  Report Type: 
  Country: None (occurrence: None)
  Receive Date: 20050503
  Receipt Date: 20050316
  Transmission Date: 20051028
  Serious: Yes (Death)
  Sender: FDA-Public Use
  Company Number: 2005S1001288

PATIENT
  Age: 61 Year
  Sex: Male
  Weight: 88.905 kg

DRUGS (13)
  1. CLOZAPINE [Suspect]
     Indication: SCHIZOPHRENIA
     Dosage: 50 MG; HS; PO
     Route: 048
     Dates: start: 20000816, end: 20050301
  2. CLOZAPINE [Suspect]
     Indication: SCHIZOPHRENIA
     Dosage: 400 MG; HS; PO
     Route: 048
     Dates: start: 20000816
  3. GEODON [Suspect]
     Dosage: 160 MG; BID;
  4. ESCITALOPRAM [Concomitant]
  5. LANSOPRAZOLE [Concomitant]
  6. PSYLLIUM HYDROPHILIC [Concomitant]
  7. MUCILLOID [Concomitant]
  8. VALPROATE SODIUM [Concomitant]
  9. BENZATROPINE MESILATE [Concomitant]
  10. ASCORBIC ACID/TOCOPHEROL/RETINOL [Concomitant]
  11. MCROGOL [Concomitant]
  12. ALBUTEROL [Concomitant]
  13. MAGNESIUM [Concomitant]

REACTIONS (7)
  - BACK PAIN [None]
  - CARDIO-RESPIRATORY ARREST [None]
  - COUGH [None]
  - DYSPNOEA [None]
  - LOSS OF CONSCIOUSNESS [None]
  - RESTLESSNESS [None]
  - WHEEZING [None]
